FAERS Safety Report 15701571 (Version 1)
Quarter: 2018Q4

REPORT INFORMATION
  Report Type: Spontaneous
  Country: US (occurrence: US)
  Receive Date: 20181208
  Receipt Date: 20181208
  Transmission Date: 20190205
  Serious: Yes (Hospitalization, Other)
  Sender: FDA-Public Use
  Company Number: US-UNICHEM PHARMACEUTICALS (USA) INC-UCM201703-000074

PATIENT
  Age: 37 Year
  Sex: Male

DRUGS (2)
  1. VENLAFAXINE [Concomitant]
     Active Substance: VENLAFAXINE HYDROCHLORIDE
  2. DIVALPROEX SODIUM. [Suspect]
     Active Substance: DIVALPROEX SODIUM
     Dosage: 50 TABLETS OF 500 MG
     Route: 048

REACTIONS (12)
  - Abdominal pain [Unknown]
  - Intentional overdose [Unknown]
  - Vomiting [Unknown]
  - Pancreatitis chronic [Unknown]
  - Somnolence [Recovering/Resolving]
  - Toxicity to various agents [Unknown]
  - Pancreatic pseudocyst [Unknown]
  - Hyperlipasaemia [Unknown]
  - Pancreatitis [Not Recovered/Not Resolved]
  - Hyperammonaemia [Recovered/Resolved]
  - Amylase increased [Unknown]
  - Mental status changes [Recovering/Resolving]
